FAERS Safety Report 5703418-X (Version None)
Quarter: 2008Q2

REPORT INFORMATION
  Report Type: 
  Country: None (occurrence: None)
  Receive Date: 20080411
  Receipt Date: 20080331
  Transmission Date: 20081010
  Serious: Yes (Hospitalization)
  Sender: FDA-Public Use
  Company Number: FR-PFIZER INC-2008029064

PATIENT
  Age: 93 Year
  Sex: Female

DRUGS (2)
  1. LYRICA [Suspect]
  2. GABAPENTIN [Concomitant]

REACTIONS (5)
  - ACUTE PULMONARY OEDEMA [None]
  - COORDINATION ABNORMAL [None]
  - MUSCULAR WEAKNESS [None]
  - PYREXIA [None]
  - SEPSIS [None]
